FAERS Safety Report 11300903 (Version 1)
Quarter: 2015Q3

REPORT INFORMATION
  Report Type: Spontaneous
  Country: US (occurrence: US)
  Receive Date: 20150722
  Receipt Date: 20150722
  Transmission Date: 20151125
  Serious: No
  Sender: FDA-Public Use
  Company Number: US-ELI_LILLY_AND_COMPANY-US201201008962

PATIENT
  Sex: Male

DRUGS (14)
  1. NOVOLOG [Concomitant]
     Active Substance: INSULIN ASPART
     Dosage: 1 DF, OTHER
  2. KLOR-CON [Concomitant]
     Active Substance: POTASSIUM CHLORIDE
     Dosage: 10 MEQ, UNK
  3. ASPIRIN. [Concomitant]
     Active Substance: ASPIRIN
     Dosage: 325 MG, QD
     Route: 048
  4. PEPCID [Concomitant]
     Active Substance: FAMOTIDINE
     Dosage: UNK
  5. TESTOSTERONE CYPIONATE. [Concomitant]
     Active Substance: TESTOSTERONE CYPIONATE
     Dosage: 5 DF, WEEKLY (1/W)
     Route: 030
  6. BUMEX [Concomitant]
     Active Substance: BUMETANIDE
     Dosage: 0.5 MG, 2-3 TIMES A DAY
  7. LANTUS [Concomitant]
     Active Substance: INSULIN GLARGINE
     Dosage: 50 U, BOLUS
  8. AMITIZA [Concomitant]
     Active Substance: LUBIPROSTONE
     Dosage: 24 MG, PRN
  9. PLAVIX [Concomitant]
     Active Substance: CLOPIDOGREL BISULFATE
  10. PROTONIX [Concomitant]
     Active Substance: PANTOPRAZOLE SODIUM
     Dosage: UNK
  11. COREG [Concomitant]
     Active Substance: CARVEDILOL
     Dosage: 12.5 DF, BID
  12. MAGNESIUM OXIDE. [Concomitant]
     Active Substance: MAGNESIUM OXIDE
     Dosage: 400 MG, UNK
  13. ATIVAN [Concomitant]
     Active Substance: LORAZEPAM
     Dosage: 1 MG, OTHER
  14. EFFIENT [Suspect]
     Active Substance: PRASUGREL HYDROCHLORIDE
     Indication: ACUTE MYOCARDIAL INFARCTION
     Dosage: 10 MG, QD
     Route: 048
     Dates: start: 20120113

REACTIONS (1)
  - Blood glucose increased [Unknown]
